FAERS Safety Report 7883034-4 (Version None)
Quarter: 2011Q4

REPORT INFORMATION
  Report Type: 
  Country: None (occurrence: None)
  Receive Date: 20111102
  Receipt Date: 20111018
  Transmission Date: 20120403
  Serious: Yes (Death, Hospitalization)
  Sender: FDA-Public Use
  Company Number: AT-BIOGENIDEC-2011BI041143

PATIENT
  Age: 31 Year
  Sex: Female

DRUGS (1)
  1. TYSABRI [Suspect]
     Indication: RELAPSING-REMITTING MULTIPLE SCLEROSIS
     Dates: end: 20100210

REACTIONS (2)
  - MYCOPLASMA INFECTION [None]
  - ACUTE HAEMORRHAGIC LEUKOENCEPHALITIS [None]
